FAERS Safety Report 19431100 (Version 1)
Quarter: 2021Q2

REPORT INFORMATION
  Report Type: Spontaneous
  Country: US (occurrence: US)
  Receive Date: 20210618
  Receipt Date: 20210618
  Transmission Date: 20210717
  Serious: Yes (Hospitalization)
  Sender: FDA-Public Use
  Company Number: US-QUAGEN-2021QUALIT00043

PATIENT
  Age: 48 Year
  Sex: Female

DRUGS (5)
  1. LORAZEPAM. [Interacting]
     Active Substance: LORAZEPAM
     Indication: SUBSTANCE-INDUCED PSYCHOTIC DISORDER
     Route: 065
  2. OLANZAPINE. [Interacting]
     Active Substance: OLANZAPINE
     Indication: SUBSTANCE-INDUCED PSYCHOTIC DISORDER
     Route: 065
  3. DEXAMETHASONE. [Suspect]
     Active Substance: DEXAMETHASONE
     Indication: PRODUCT USED FOR UNKNOWN INDICATION
     Route: 065
  4. SELINEXOR [Suspect]
     Active Substance: SELINEXOR
     Indication: PRODUCT USED FOR UNKNOWN INDICATION
     Route: 048
  5. TRIAMCINOLONE ACETONIDE. [Suspect]
     Active Substance: TRIAMCINOLONE ACETONIDE
     Indication: RASH PRURITIC
     Route: 030

REACTIONS (2)
  - Drug interaction [Recovered/Resolved]
  - Substance-induced psychotic disorder [Recovered/Resolved]
